FAERS Safety Report 10785180 (Version 1)
Quarter: 2015Q1

REPORT INFORMATION
  Report Type: Spontaneous
  Country: US (occurrence: None)
  Receive Date: 20150209
  Receipt Date: 20150209
  Transmission Date: 20150721
  Serious: Yes (Other)
  Sender: FDA-Public Use
  Company Number: 2728808

PATIENT
  Age: 66 Year
  Sex: Male

DRUGS (20)
  1. FENTANYL. [Concomitant]
     Active Substance: FENTANYL
  2. VALSARTAN. [Concomitant]
     Active Substance: VALSARTAN
  3. ACETAMINOPHEN. [Concomitant]
     Active Substance: ACETAMINOPHEN
  4. SENNA [Concomitant]
     Active Substance: SENNA LEAF\SENNOSIDES\SENNOSIDES A AND B
  5. PROPOFOL. [Suspect]
     Active Substance: PROPOFOL
     Indication: GENERAL ANAESTHESIA
     Dosage: (NOT OTHERWISE SPECIFIED)
     Route: 042
  6. SEVOFLURANE. [Concomitant]
     Active Substance: SEVOFLURANE
  7. MIRTAZAPINE. [Concomitant]
     Active Substance: MIRTAZAPINE
  8. LEVODOPA [Concomitant]
     Active Substance: LEVODOPA
  9. CEFAZOLIN [Concomitant]
     Active Substance: CEFAZOLIN
  10. ATORVASTATIN [Concomitant]
     Active Substance: ATORVASTATIN
  11. MIDAZOLAM [Concomitant]
     Active Substance: MIDAZOLAM\MIDAZOLAM HYDROCHLORIDE
  12. ENTACAPONE. [Concomitant]
     Active Substance: ENTACAPONE
  13. SELEGILINE [Concomitant]
     Active Substance: SELEGILINE
  14. ETOMIDATE. [Concomitant]
     Active Substance: ETOMIDATE
  15. VECURONIUM [Concomitant]
     Active Substance: VECURONIUM BROMIDE
  16. HYDROMORPHONE [Concomitant]
     Active Substance: HYDROMORPHONE
  17. AMANTADINE [Concomitant]
     Active Substance: AMANTADINE
  18. TRAMADOL [Concomitant]
     Active Substance: TRAMADOL
  19. CARBIDOPA. [Concomitant]
     Active Substance: CARBIDOPA
  20. LANSOPRAZOLE. [Concomitant]
     Active Substance: LANSOPRAZOLE

REACTIONS (2)
  - Diabetes insipidus [None]
  - Procedural complication [None]
